FAERS Safety Report 18784932 (Version 2)
Quarter: 2021Q1

REPORT INFORMATION
  Report Type: Spontaneous
  Country: US (occurrence: US)
  Receive Date: 20210126
  Receipt Date: 20210315
  Transmission Date: 20210419
  Serious: Yes (Other)
  Sender: FDA-Public Use
  Company Number: US-ROCHE-2756614

PATIENT
  Sex: Male
  Weight: 86.26 kg

DRUGS (2)
  1. VALIUM [Suspect]
     Active Substance: DIAZEPAM
     Indication: ILL-DEFINED DISORDER
     Route: 048
     Dates: start: 2001
  2. VALIUM [Suspect]
     Active Substance: DIAZEPAM
     Indication: GASTRIC DISORDER

REACTIONS (4)
  - Blood pressure fluctuation [Not Recovered/Not Resolved]
  - Off label use [Unknown]
  - Cervical vertebral fracture [Not Recovered/Not Resolved]
  - Nephrolithiasis [Not Recovered/Not Resolved]

NARRATIVE: CASE EVENT DATE: 2014
